FAERS Safety Report 26013486 (Version 3)
Quarter: 2025Q4

REPORT INFORMATION
  Report Type: Spontaneous
  Country: US (occurrence: US)
  Receive Date: 20251107
  Receipt Date: 20251212
  Transmission Date: 20260117
  Serious: No
  Sender: PFIZER
  Company Number: US-PFIZER INC-202500215705

PATIENT

DRUGS (2)
  1. NGENLA [Suspect]
     Active Substance: SOMATROGON-GHLA
     Dosage: 8 MG
  2. NGENLA [Suspect]
     Active Substance: SOMATROGON-GHLA
     Dosage: 7 MG

REACTIONS (3)
  - Insulin-like growth factor increased [Unknown]
  - Device issue [Unknown]
  - Incorrect dose administered by device [Unknown]
